FAERS Safety Report 23418182 (Version 1)
Quarter: 2024Q1

REPORT INFORMATION
  Report Type: Spontaneous
  Country: US (occurrence: None)
  Receive Date: 20240118
  Receipt Date: 20240118
  Transmission Date: 20240410
  Serious: Yes (Life-Threatening, Hospitalization)
  Sender: FDA-Public Use
  Company Number: None

PATIENT
  Age: 78 Year
  Sex: Male
  Weight: 96.75 kg

DRUGS (15)
  1. MELOXICAM [Suspect]
     Active Substance: MELOXICAM
     Indication: Back pain
     Dosage: 1 TABLET ORAL
     Route: 048
     Dates: start: 20231101, end: 20240108
  2. MELOXICAM [Suspect]
     Active Substance: MELOXICAM
     Indication: Spinal fusion surgery
  3. LOSARTAN [Concomitant]
     Active Substance: LOSARTAN
  4. AMLODIPINE BESYLATE [Concomitant]
     Active Substance: AMLODIPINE BESYLATE
  5. hydroclorothyazide [Concomitant]
  6. FLOMAX [Concomitant]
     Active Substance: TAMSULOSIN HYDROCHLORIDE
  7. triminafin [Concomitant]
  8. FLUVOXAMINE [Concomitant]
     Active Substance: FLUVOXAMINE
  9. TRAZODONE [Concomitant]
     Active Substance: TRAZODONE HYDROCHLORIDE
  10. experimental atorvastin or placebo [Concomitant]
  11. PANTOPRAZOLE SODIUM [Concomitant]
     Active Substance: PANTOPRAZOLE SODIUM
  12. FLAXSEED [Concomitant]
     Active Substance: FLAX SEED
  13. FISH OIL [Concomitant]
     Active Substance: FISH OIL
  14. VITAMINS [Concomitant]
     Active Substance: VITAMINS
  15. VITAMIN E [Concomitant]
     Active Substance: .ALPHA.-TOCOPHEROL

REACTIONS (4)
  - Syncope [None]
  - Duodenal ulcer perforation [None]
  - Transfusion [None]
  - Product complaint [None]

NARRATIVE: CASE EVENT DATE: 20240108
